FAERS Safety Report 10637489 (Version 1)
Quarter: 2014Q4

REPORT INFORMATION
  Report Type: Spontaneous
  Country: US (occurrence: None)
  Receive Date: 20141205
  Receipt Date: 20141205
  Transmission Date: 20150529
  Serious: Yes (Disabling)
  Sender: FDA-Public Use
  Company Number: None

PATIENT
  Age: 31 Year
  Sex: Female
  Weight: 62.6 kg

DRUGS (1)
  1. INFLIXIMAB [Suspect]
     Active Substance: INFLIXIMAB
     Indication: CROHN^S DISEASE
     Dosage: EVERY 8 WEEKS INTRAVENOUSLY
     Route: 042
     Dates: start: 20130730, end: 20140416

REACTIONS (2)
  - Arthralgia [None]
  - Pain in jaw [None]

NARRATIVE: CASE EVENT DATE: 20140612
